FAERS Safety Report 15534746 (Version 1)
Quarter: 2018Q4

REPORT INFORMATION
  Report Type: Spontaneous
  Country: US (occurrence: US)
  Receive Date: 20181022
  Receipt Date: 20181022
  Transmission Date: 20190205
  Serious: Yes (Hospitalization, Other)
  Sender: FDA-Public Use
  Company Number: US-LUPIN PHARMACEUTICALS INC.-2018-07267

PATIENT
  Age: 55 Year
  Sex: Male

DRUGS (2)
  1. OXYCODONE [Suspect]
     Active Substance: OXYCODONE
     Indication: PAIN
     Dosage: 70 MG, QD
     Route: 065
  2. OXYCODONE [Suspect]
     Active Substance: OXYCODONE
     Dosage: UNK, DOSAGE ESCALATION

REACTIONS (4)
  - Overdose [Unknown]
  - Drug use disorder [Unknown]
  - Drug withdrawal syndrome [Unknown]
  - Drug dependence [Not Recovered/Not Resolved]
